FAERS Safety Report 10221511 (Version 1)
Quarter: 2014Q2

REPORT INFORMATION
  Report Type: Spontaneous
  Country: US (occurrence: None)
  Receive Date: 20140605
  Receipt Date: 20140605
  Transmission Date: 20141212
  Serious: Yes (Hospitalization)
  Sender: FDA-Public Use
  Company Number: None

PATIENT
  Age: 78 Year
  Sex: Male
  Weight: 70.4 kg

DRUGS (1)
  1. IBUPROFEN [Suspect]
     Indication: PAIN
     Route: 048
     Dates: start: 20140419, end: 20140422

REACTIONS (8)
  - Hypotension [None]
  - Gastritis [None]
  - Duodenitis [None]
  - Ulcer [None]
  - Fall [None]
  - Upper gastrointestinal haemorrhage [None]
  - Pain [None]
  - Discomfort [None]
